FAERS Safety Report 7293036-7 (Version None)
Quarter: 2011Q1

REPORT INFORMATION
  Report Type: 
  Country: None (occurrence: None)
  Receive Date: 20110215
  Receipt Date: 20110209
  Transmission Date: 20110831
  Serious: No
  Sender: FDA-Public Use
  Company Number: US-PFIZER INC-2010086985

PATIENT
  Sex: Male

DRUGS (2)
  1. PRISTIQ [Interacting]
     Dosage: UNK
  2. HYDROXYZINE HCL [Suspect]
     Dosage: UNK

REACTIONS (2)
  - DRUG INTERACTION [None]
  - DRY MOUTH [None]
